FAERS Safety Report 7142797-6 (Version None)
Quarter: 2010Q4

REPORT INFORMATION
  Report Type: 
  Country: None (occurrence: None)
  Receive Date: 20101207
  Receipt Date: 20101130
  Transmission Date: 20110411
  Serious: Yes (Hospitalization, Other)
  Sender: FDA-Public Use
  Company Number: US-US-EMD SERONO, INC.-233222J09USA

PATIENT
  Sex: Female

DRUGS (6)
  1. REBIF [Suspect]
     Indication: MULTIPLE SCLEROSIS
     Route: 058
     Dates: start: 20090825
  2. ARICEPT [Suspect]
     Indication: AMNESIA
     Route: 065
     Dates: start: 20090101, end: 20091101
  3. AMANTADINE HCL [Suspect]
     Indication: FATIGUE
     Route: 065
     Dates: start: 20090101, end: 20091101
  4. KEPPRA [Concomitant]
     Indication: CONVULSION
     Route: 065
     Dates: start: 20090501
  5. KEPPRA [Concomitant]
     Route: 065
     Dates: start: 20091101
  6. FLUOXETINE [Concomitant]
     Indication: DEPRESSION
     Route: 065

REACTIONS (9)
  - BODY TEMPERATURE INCREASED [None]
  - CHILLS [None]
  - CONVULSION [None]
  - DISEASE PROGRESSION [None]
  - MICTURITION URGENCY [None]
  - MOTOR DYSFUNCTION [None]
  - PNEUMONIA [None]
  - POLLAKIURIA [None]
  - URINARY TRACT INFECTION [None]
